FAERS Safety Report 25994759 (Version 1)
Quarter: 2025Q4

REPORT INFORMATION
  Report Type: Spontaneous
  Country: GB (occurrence: GB)
  Receive Date: 20251104
  Receipt Date: 20251104
  Transmission Date: 20260118
  Serious: Yes (Other)
  Sender: IPSEN BIOPHARMACEUTICALS, INC.
  Company Number: GB-ADVANZ PHARMA-202504003213

PATIENT
  Sex: Male
  Weight: 76 kg

DRUGS (4)
  1. LANREOTIDE ACETATE [Suspect]
     Active Substance: LANREOTIDE ACETATE
     Indication: Product used for unknown indication
     Dosage: UNK (EVERY 4 WEEKS WITH 2 WEEK GAP TO TAKING  PEMBROLUZAMAB EVERY 6 WEEKS FOR 2 YEARS)
  2. LANREOTIDE [Suspect]
     Active Substance: LANREOTIDE
     Indication: Neuroendocrine tumour
     Dosage: 120 MG EVERY 28 DAYS (E28D), (DEEP SUBCUTANEOUS)
     Route: 058
  3. LANREOTIDE [Suspect]
     Active Substance: LANREOTIDE
     Dosage: 120 MG EVERY 28 DAYS (E28D), (DEEP SUBCUTANEOUS)
     Route: 058
  4. LANREOTIDE [Suspect]
     Active Substance: LANREOTIDE
     Dosage: 120 MG EVERY 28 DAYS (E28D), (DEEP SUBCUTANEOUS)
     Route: 058

REACTIONS (6)
  - Lip and/or oral cavity cancer [Not Recovered/Not Resolved]
  - Gastrointestinal carcinoma [Not Recovered/Not Resolved]
  - Diarrhoea [Not Recovered/Not Resolved]
  - Weight decreased [Not Recovered/Not Resolved]
  - Needle issue [Unknown]
  - Product quality issue [Unknown]
